FAERS Safety Report 22031349 (Version 4)
Quarter: 2023Q1

REPORT INFORMATION
  Report Type: Report from Study
  Country: IL (occurrence: IL)
  Receive Date: 20230224
  Receipt Date: 20230329
  Transmission Date: 20230418
  Serious: Yes (Hospitalization)
  Sender: FDA-Public Use
  Company Number: IL-ABBVIE-4316102

PATIENT
  Age: 63 Year
  Sex: Male

DRUGS (4)
  1. CARBIDOPA\LEVODOPA [Suspect]
     Active Substance: CARBIDOPA\LEVODOPA
     Indication: Parkinson^s disease
     Route: 050
     Dates: start: 20160109
  2. CARBIDOPA\LEVODOPA [Suspect]
     Active Substance: CARBIDOPA\LEVODOPA
     Dosage: MORNING DOSAGE(ML)  10.5, CONTINUOUS DOSAGE (ML/H)  5.5, EXTRA DOSAGE (ML)  2.5?REMAINS AT 16 HRS
     Route: 050
  3. CARBIDOPA\LEVODOPA [Suspect]
     Active Substance: CARBIDOPA\LEVODOPA
     Dosage: MORNING DOSAGE(ML)  10.5, CONTINUOUS DOSAGE (ML/H)  5.5, EXTRA DOSAGE (ML)  2.5
     Route: 050
  4. CARBIDOPA\LEVODOPA [Suspect]
     Active Substance: CARBIDOPA\LEVODOPA
     Route: 050
     Dates: start: 20160109

REACTIONS (3)
  - Pneumonia aspiration [Recovering/Resolving]
  - Decubitus ulcer [Unknown]
  - Tracheostomy [Unknown]

NARRATIVE: CASE EVENT DATE: 20230221
